FAERS Safety Report 5266700-9 (Version None)
Quarter: 2007Q1

REPORT INFORMATION
  Report Type: 
  Country: None (occurrence: None)
  Receive Date: 20070312
  Receipt Date: 20070228
  Transmission Date: 20070707
  Serious: Yes (Hospitalization)
  Sender: FDA-Public Use
  Company Number: TIF2007A00022

PATIENT
  Age: 66 Year
  Sex: Male

DRUGS (3)
  1. ACTOS [Suspect]
     Indication: METABOLIC SYNDROME
     Dosage: 15 MG (15 MG, 1 IN 1 D) ORAL
     Route: 048
     Dates: start: 20060902, end: 20061020
  2. SINTROM [Concomitant]
  3. AMIODAR (AMIODARONE HYDROCHLORIDE) [Concomitant]

REACTIONS (2)
  - CARDIAC FAILURE [None]
  - VENTRICULAR ARRHYTHMIA [None]
